FAERS Safety Report 12339046 (Version 1)
Quarter: 2016Q2

REPORT INFORMATION
  Report Type: Spontaneous
  Country: HR (occurrence: HR)
  Receive Date: 20160505
  Receipt Date: 20160505
  Transmission Date: 20160815
  Serious: Yes (Death, Hospitalization)
  Sender: FDA-Public Use
  Company Number: PHHY2016HR058292

PATIENT
  Age: 35 Year
  Sex: Female

DRUGS (1)
  1. PIPERACILLIN, TAZOBACTAM [Suspect]
     Active Substance: PIPERACILLIN SODIUM\TAZOBACTAM SODIUM
     Indication: PERITONITIS
     Dosage: UNK
     Route: 065

REACTIONS (5)
  - Clostridium difficile infection [Fatal]
  - Vomiting [Unknown]
  - Septic shock [Fatal]
  - Leukopenia [Unknown]
  - Diarrhoea [Unknown]
